FAERS Safety Report 5472675-X (Version None)
Quarter: 2007Q4

REPORT INFORMATION
  Report Type: 
  Country: None (occurrence: None)
  Receive Date: 20071001
  Receipt Date: 20060907
  Transmission Date: 20080405
  Serious: No
  Sender: FDA-Public Use
  Company Number: US-ASTRAZENECA-2006UW17584

PATIENT
  Age: 67 Year
  Sex: Female
  Weight: 68 kg

DRUGS (4)
  1. ARIMIDEX [Suspect]
     Route: 048
     Dates: start: 20060401
  2. LIPITOR [Concomitant]
     Dosage: 1/2  10 MG TABLET
     Route: 048
  3. PROTONIX [Concomitant]
  4. BONIVA [Concomitant]

REACTIONS (5)
  - DYSPHONIA [None]
  - HOT FLUSH [None]
  - HYPOAESTHESIA [None]
  - PAIN [None]
  - PARAESTHESIA [None]
